FAERS Safety Report 7518431-X (Version None)
Quarter: 2011Q2

REPORT INFORMATION
  Report Type: 
  Country: None (occurrence: None)
  Receive Date: 20110601
  Receipt Date: 20110601
  Transmission Date: 20111010
  Serious: Yes (Hospitalization)
  Sender: FDA-Public Use
  Company Number: None

PATIENT
  Age: 54 Year
  Sex: Female
  Weight: 74.8435 kg

DRUGS (1)
  1. LIOTHYRONINE SODIUM [Suspect]
     Indication: HYPOTHYROIDISM
     Dosage: 5 MCG 1X/DAY PO
     Route: 048
     Dates: start: 20101214, end: 20110113

REACTIONS (4)
  - CHILLS [None]
  - ANXIETY [None]
  - HYPERTENSION [None]
  - PARAESTHESIA [None]
